FAERS Safety Report 11392433 (Version 1)
Quarter: 2015Q3

REPORT INFORMATION
  Report Type: Spontaneous
  Country: PT (occurrence: PT)
  Receive Date: 20150818
  Receipt Date: 20150818
  Transmission Date: 20151125
  Serious: Yes (Other)
  Sender: FDA-Public Use
  Company Number: PT-009507513-1508PRT005580

PATIENT
  Age: 72 Year
  Sex: Female
  Weight: 76 kg

DRUGS (1)
  1. TIENAM IV [Suspect]
     Active Substance: CILASTATIN SODIUM\IMIPENEM
     Indication: LOCALISED INFECTION
     Route: 042
     Dates: start: 20150507, end: 20150511

REACTIONS (1)
  - Cholestasis [Unknown]

NARRATIVE: CASE EVENT DATE: 20150526
